FAERS Safety Report 5604152-7 (Version None)
Quarter: 2008Q1

REPORT INFORMATION
  Report Type: 
  Country: None (occurrence: None)
  Receive Date: 20080128
  Receipt Date: 20080123
  Transmission Date: 20080703
  Serious: Yes (Life-Threatening)
  Sender: FDA-Public Use
  Company Number: PHBS2008PT01246

PATIENT
  Age: 49 Year
  Sex: Female
  Weight: 75 kg

DRUGS (2)
  1. THIOCOLCHICOSIDE [Concomitant]
     Indication: BACK PAIN
     Dosage: 4 MG/DAY
     Dates: start: 20070507, end: 20070507
  2. VOLTAREN [Suspect]
     Indication: BACK PAIN
     Dosage: 75 MG, ONCE/SINGLE
     Route: 030
     Dates: start: 20070507, end: 20070507

REACTIONS (4)
  - AGITATION [None]
  - CONVULSION [None]
  - INCONTINENCE [None]
  - URTICARIA [None]
